FAERS Safety Report 24236415 (Version 1)
Quarter: 2024Q3

REPORT INFORMATION
  Report Type: Spontaneous
  Country: CN (occurrence: None)
  Receive Date: 20240822
  Receipt Date: 20240822
  Transmission Date: 20241017
  Serious: Yes (Hospitalization)
  Sender: ORION
  Company Number: CN-Orion Corporation ORION PHARMA-ENT 2024-0039

PATIENT
  Age: 87 Year
  Sex: Male
  Weight: 58 kg

DRUGS (4)
  1. ENTACAPONE [Suspect]
     Active Substance: ENTACAPONE
     Indication: Parkinsonism
     Dates: start: 20240731, end: 20240807
  2. BENSERAZIDE HYDROCHLORIDE\LEVODOPA [Suspect]
     Active Substance: BENSERAZIDE HYDROCHLORIDE\LEVODOPA
     Indication: Parkinsonism
     Dates: start: 20240731, end: 20240812
  3. PRAMIPEXOLE DIHYDROCHLORIDE [Suspect]
     Active Substance: PRAMIPEXOLE DIHYDROCHLORIDE
     Indication: Parkinsonism
     Dates: start: 20240731, end: 20240804
  4. PRAMIPEXOLE DIHYDROCHLORIDE [Suspect]
     Active Substance: PRAMIPEXOLE DIHYDROCHLORIDE
     Dates: start: 20240805, end: 20240812

REACTIONS (4)
  - Musculoskeletal stiffness [Recovering/Resolving]
  - Restlessness [Recovered/Resolved]
  - Persecutory delusion [Recovered/Resolved]
  - Psychiatric symptom [Unknown]

NARRATIVE: CASE EVENT DATE: 20240805
